FAERS Safety Report 13611862 (Version 1)
Quarter: 2017Q2

REPORT INFORMATION
  Report Type: Spontaneous
  Country: FR (occurrence: FR)
  Receive Date: 20170605
  Receipt Date: 20170605
  Transmission Date: 20170830
  Serious: Yes (Hospitalization, Other)
  Sender: FDA-Public Use
  Company Number: FR-PFIZER INC-2017189090

PATIENT
  Age: 74 Year
  Sex: Female

DRUGS (4)
  1. TAHOR [Suspect]
     Active Substance: ATORVASTATIN CALCIUM
     Dosage: 80 MG, UNK
     Dates: start: 201604, end: 201609
  2. KARDEGIC [Concomitant]
     Active Substance: ASPIRIN LYSINE
     Dosage: UNK
     Dates: start: 201604
  3. INIPOMP [Concomitant]
     Active Substance: PANTOPRAZOLE SODIUM
     Dosage: UNK
     Dates: start: 201604
  4. TAHOR [Suspect]
     Active Substance: ATORVASTATIN CALCIUM
     Dosage: 40 MG, UNK
     Dates: start: 201609

REACTIONS (2)
  - Weight increased [Unknown]
  - Cerebrovascular accident [Not Recovered/Not Resolved]

NARRATIVE: CASE EVENT DATE: 20160407
